FAERS Safety Report 10643792 (Version 1)
Quarter: 2014Q4

REPORT INFORMATION
  Report Type: Spontaneous
  Country: GB (occurrence: GB)
  Receive Date: 20141210
  Receipt Date: 20141210
  Transmission Date: 20150529
  Serious: Yes (Hospitalization)
  Sender: FDA-Public Use
  Company Number: GB-TEVA-526032ISR

PATIENT
  Age: 34 Year
  Sex: Female

DRUGS (2)
  1. SALBUTAMOL [Suspect]
     Active Substance: ALBUTEROL
     Indication: WHEEZING
     Dosage: TWO INHALATIONS VIA AEROCHAMBER SPACER STRAIGHT AWAY.
     Route: 055
     Dates: start: 20140607, end: 20140607
  2. CYCLIZINE [Concomitant]
     Active Substance: CYCLIZINE

REACTIONS (5)
  - Dizziness [Unknown]
  - Feeling cold [Unknown]
  - Tremor [Unknown]
  - Pallor [Unknown]
  - Reaction to drug excipients [Unknown]

NARRATIVE: CASE EVENT DATE: 20140607
